FAERS Safety Report 17133670 (Version 1)
Quarter: 2019Q4

REPORT INFORMATION
  Report Type: Spontaneous
  Country: US (occurrence: US)
  Receive Date: 20191210
  Receipt Date: 20191210
  Transmission Date: 20200122
  Serious: No
  Sender: FDA-Public Use
  Company Number: US-UCBSA-2016029024

PATIENT
  Age: 57 Year
  Sex: Female
  Weight: 99.7 kg

DRUGS (1)
  1. CIMZIA [Suspect]
     Active Substance: CERTOLIZUMAB PEGOL
     Indication: PSORIATIC ARTHROPATHY
     Dosage: 200 MG, UNK
     Route: 058
     Dates: start: 20160427, end: 2016

REACTIONS (4)
  - Vomiting [Recovered/Resolved]
  - Injection site bruising [Recovered/Resolved]
  - Nonspecific reaction [Unknown]
  - Palpitations [Recovered/Resolved]

NARRATIVE: CASE EVENT DATE: 20160427
